FAERS Safety Report 9324981 (Version 1)
Quarter: 2013Q2

REPORT INFORMATION
  Report Type: Spontaneous
  Country: US (occurrence: US)
  Receive Date: 20130603
  Receipt Date: 20130603
  Transmission Date: 20140414
  Serious: No
  Sender: FDA-Public Use
  Company Number: US-ASTRAZENECA-2013SE35617

PATIENT
  Age: 77 Year
  Sex: Female
  Weight: 51.3 kg

DRUGS (8)
  1. CRESTOR [Suspect]
     Indication: BLOOD CHOLESTEROL ABNORMAL
     Route: 048
     Dates: start: 2007
  2. HCTZ [Suspect]
     Indication: BLOOD PRESSURE ABNORMAL
     Route: 048
  3. NIACIN [Concomitant]
     Indication: HIGH DENSITY LIPOPROTEIN DECREASED
     Route: 048
  4. NIFEDIPINE [Concomitant]
     Indication: BLOOD PRESSURE ABNORMAL
     Route: 048
  5. IRON INFUSION [Concomitant]
     Indication: MINERAL SUPPLEMENTATION
     Dosage: YEAR
     Route: 042
     Dates: start: 2000
  6. VITAMIN B12 [Concomitant]
     Indication: VITAMIN SUPPLEMENTATION
     Dosage: MONTH
     Route: 050
     Dates: start: 2011
  7. PLAVIX [Concomitant]
     Indication: PLATELET ADHESIVENESS
     Route: 048
     Dates: start: 2008
  8. PROLIA [Concomitant]
     Indication: OSTEOPOROSIS

REACTIONS (14)
  - Abdominal hernia [Recovered/Resolved]
  - Psychomotor hyperactivity [Unknown]
  - Procedural pain [Unknown]
  - Vomiting [Unknown]
  - Tremor [Unknown]
  - Weight decreased [Unknown]
  - Diarrhoea [Unknown]
  - Retching [Unknown]
  - Vitamin B12 deficiency [Unknown]
  - Bone loss [Unknown]
  - Blood iron abnormal [Unknown]
  - Agitation [Unknown]
  - Osteoporosis [Unknown]
  - Coeliac disease [Unknown]
